FAERS Safety Report 10672287 (Version 1)
Quarter: 2014Q4

REPORT INFORMATION
  Report Type: Spontaneous
  Country: US (occurrence: None)
  Receive Date: 20141222
  Receipt Date: 20141222
  Transmission Date: 20150529
  Serious: Yes (Other)
  Sender: FDA-Public Use
  Company Number: None

PATIENT
  Age: 25 Year
  Sex: Female
  Weight: 64.41 kg

DRUGS (1)
  1. DEPO-PROVERA [Suspect]
     Active Substance: MEDROXYPROGESTERONE ACETATE
     Indication: CONTRACEPTION
     Dosage: ONE SHOT EVERY 90 DAYS
     Route: 030

REACTIONS (9)
  - Disturbance in attention [None]
  - Heart rate increased [None]
  - Depression [None]
  - Amenorrhoea [None]
  - Dizziness [None]
  - Anxiety [None]
  - Agitation [None]
  - Metabolic syndrome [None]
  - Mood swings [None]
